FAERS Safety Report 7982435-3 (Version None)
Quarter: 2011Q4

REPORT INFORMATION
  Report Type: 
  Country: None (occurrence: None)
  Receive Date: 20111214
  Receipt Date: 20111214
  Transmission Date: 20120403
  Serious: Yes (Other)
  Sender: FDA-Public Use
  Company Number: None

PATIENT
  Age: 82 Year
  Sex: Female

DRUGS (7)
  1. TRAVATAN Z [Concomitant]
  2. ASPIRIN [Concomitant]
  3. TIMOOPTIC [Concomitant]
  4. REVLIMID [Suspect]
     Indication: MYELODYSPLASTIC SYNDROME
     Dosage: 5MG QOD ORALLY
     Route: 048
  5. NORVASC [Concomitant]
  6. POTASSIUM CHLORIDE [Concomitant]
  7. HYDROCHLOROTHIAZIDE [Concomitant]

REACTIONS (1)
  - FULL BLOOD COUNT ABNORMAL [None]
